FAERS Safety Report 14314809 (Version 1)
Quarter: 2017Q4

REPORT INFORMATION
  Report Type: Report from Study
  Country: None (occurrence: NL)
  Receive Date: 20171221
  Receipt Date: 20171221
  Transmission Date: 20180321
  Serious: Yes (Hospitalization, Other)
  Sender: FDA-Public Use
  Company Number: NL-ABBVIE-17S-114-2178217-00

PATIENT
  Sex: Female
  Weight: 85 kg

DRUGS (2)
  1. LUCRIN DEPOT [Suspect]
     Active Substance: LEUPROLIDE ACETATE
     Indication: ENDOMETRIOSIS
     Route: 050
     Dates: start: 1988, end: 1988
  2. LUCRIN DEPOT [Suspect]
     Active Substance: LEUPROLIDE ACETATE
     Indication: LEIOMYOMA
     Route: 050
     Dates: start: 20171127

REACTIONS (3)
  - Endometriosis [Unknown]
  - Cyst [Unknown]
  - Leiomyoma [Not Recovered/Not Resolved]

NARRATIVE: CASE EVENT DATE: 2004
